FAERS Safety Report 18936499 (Version 1)
Quarter: 2021Q1

REPORT INFORMATION
  Report Type: Spontaneous
  Country: US (occurrence: US)
  Receive Date: 20210224
  Receipt Date: 20210224
  Transmission Date: 20210420
  Serious: No
  Sender: FDA-Public Use
  Company Number: US-TEVA-2021-US-1884312

PATIENT
  Sex: Female

DRUGS (1)
  1. MICONAZOLE NITRATE. [Suspect]
     Active Substance: MICONAZOLE NITRATE
     Indication: FUNGAL INFECTION
     Dosage: 200 MG
     Route: 067

REACTIONS (3)
  - Drug ineffective [Unknown]
  - Abdominal pain upper [Unknown]
  - Vaginal odour [Unknown]

NARRATIVE: CASE EVENT DATE: 202102
